FAERS Safety Report 24608769 (Version 2)
Quarter: 2025Q3

REPORT INFORMATION
  Report Type: Report from Study
  Country: EU (occurrence: EU)
  Receive Date: 20241112
  Receipt Date: 20250725
  Transmission Date: 20251021
  Serious: Yes (Other)
  Sender: BIOVITRUM
  Company Number: EU-AstraZeneca-CH-00734586A

PATIENT
  Sex: Female
  Weight: 4.57 kg

DRUGS (1)
  1. SYNAGIS [Suspect]
     Active Substance: PALIVIZUMAB
     Indication: Product used for unknown indication
     Route: 030

REACTIONS (1)
  - Pulmonary artery stenosis [Unknown]

NARRATIVE: CASE EVENT DATE: 20240101
